FAERS Safety Report 25818097 (Version 1)
Quarter: 2025Q3

REPORT INFORMATION
  Report Type: Spontaneous
  Country: CA (occurrence: CA)
  Receive Date: 20250918
  Receipt Date: 20250918
  Transmission Date: 20251020
  Serious: Yes (Other)
  Sender: ABBVIE
  Company Number: CA-ABBVIE-6465340

PATIENT
  Age: 47 Year
  Sex: Female

DRUGS (1)
  1. VRAYLAR [Suspect]
     Active Substance: CARIPRAZINE
     Indication: Product used for unknown indication
     Route: 048

REACTIONS (4)
  - Delusion of grandeur [Recovered/Resolved]
  - Compulsive shopping [Recovered/Resolved]
  - Speech disorder [Recovered/Resolved]
  - Mania [Recovered/Resolved]
